FAERS Safety Report 15207943 (Version 1)
Quarter: 2018Q3

REPORT INFORMATION
  Report Type: Spontaneous
  Country: ES (occurrence: ES)
  Receive Date: 20180727
  Receipt Date: 20180727
  Transmission Date: 20181010
  Serious: Yes (Other)
  Sender: FDA-Public Use
  Company Number: PHHY2018ES054753

PATIENT
  Age: 35 Year
  Sex: Female

DRUGS (6)
  1. SALAZOPYRIN [Suspect]
     Active Substance: SULFASALAZINE
     Indication: PSORIATIC ARTHROPATHY
  2. METHOTREXATE. [Suspect]
     Active Substance: METHOTREXATE
     Indication: IRIDOCYCLITIS
     Dosage: UNK
     Route: 065
  3. METHOTREXATE. [Suspect]
     Active Substance: METHOTREXATE
     Indication: PSORIATIC ARTHROPATHY
  4. METHOTREXATE. [Suspect]
     Active Substance: METHOTREXATE
     Indication: CHRONIC DISEASE
  5. SALAZOPYRIN [Suspect]
     Active Substance: SULFASALAZINE
     Indication: CHRONIC DISEASE
     Dosage: UNK
     Route: 065
  6. SALAZOPYRIN [Suspect]
     Active Substance: SULFASALAZINE
     Indication: IRIDOCYCLITIS

REACTIONS (1)
  - Drug resistance [Unknown]
